FAERS Safety Report 8164546-5 (Version None)
Quarter: 2012Q1

REPORT INFORMATION
  Report Type: 
  Country: None (occurrence: None)
  Receive Date: 20120226
  Receipt Date: 20120217
  Transmission Date: 20120608
  Serious: Yes (Hospitalization, Other)
  Sender: FDA-Public Use
  Company Number: US-ABBOTT-11P-163-0846962-00

PATIENT
  Sex: Female
  Weight: 103.06 kg

DRUGS (10)
  1. PAXIL [Concomitant]
     Indication: DEPRESSION
  2. SYMBICORT [Concomitant]
     Indication: EMPHYSEMA
     Route: 055
  3. PROTONIX [Suspect]
     Indication: PRODUCT USED FOR UNKNOWN INDICATION
  4. LYRICA [Suspect]
     Indication: FIBROMYALGIA
     Dates: start: 20100101
  5. PROCARDIA [Suspect]
     Indication: PRODUCT USED FOR UNKNOWN INDICATION
  6. VICODIN [Suspect]
     Indication: PRODUCT USED FOR UNKNOWN INDICATION
  7. CHANTIX [Suspect]
     Indication: EX-TOBACCO USER
     Dates: start: 20120101
  8. CHANTIX [Suspect]
     Dates: start: 20120101
  9. LYRICA [Suspect]
     Dates: start: 20100101
  10. LYRICA [Suspect]

REACTIONS (13)
  - SWELLING [None]
  - OFF LABEL USE [None]
  - VISION BLURRED [None]
  - CONFUSIONAL STATE [None]
  - VISUAL IMPAIRMENT [None]
  - NAUSEA [None]
  - DYSPEPSIA [None]
  - SINUSITIS [None]
  - MUSCLE SPASMS [None]
  - ABDOMINAL PAIN UPPER [None]
  - MALAISE [None]
  - DYSPNOEA [None]
  - DRUG DOSE OMISSION [None]
